FAERS Safety Report 10700209 (Version 1)
Quarter: 2015Q1

REPORT INFORMATION
  Report Type: Spontaneous
  Country: US (occurrence: US)
  Receive Date: 20150109
  Receipt Date: 20150109
  Transmission Date: 20150721
  Serious: No
  Sender: FDA-Public Use
  Company Number: US-PFIZER INC-2015006738

PATIENT
  Age: 59 Year
  Sex: Male
  Weight: 87.98 kg

DRUGS (6)
  1. CELEBREX [Suspect]
     Active Substance: CELECOXIB
     Indication: FIBROMYALGIA
  2. IBUPROFEN. [Concomitant]
     Active Substance: IBUPROFEN
     Indication: PAIN
  3. LISINOPRIL. [Concomitant]
     Active Substance: LISINOPRIL
     Indication: HYPERTENSION
     Dosage: 20 MG, 1X/DAY
  4. LYRICA [Suspect]
     Active Substance: PREGABALIN
     Indication: NEURALGIA
     Dosage: 150 MG, 1X/DAY
     Dates: start: 201311
  5. LYRICA [Suspect]
     Active Substance: PREGABALIN
     Dosage: 50 UNK, UNK (50MG CAPSULE AT BEDTIME IF NEEDED)
  6. CELEBREX [Suspect]
     Active Substance: CELECOXIB
     Indication: ARTHRITIS
     Dosage: 200 MG, 2X/DAY
     Dates: start: 201311

REACTIONS (2)
  - Intentional product misuse [Not Recovered/Not Resolved]
  - Pain [Not Recovered/Not Resolved]
